FAERS Safety Report 11759976 (Version 1)
Quarter: 2015Q4

REPORT INFORMATION
  Report Type: Spontaneous
  Country: US (occurrence: US)
  Receive Date: 20151120
  Receipt Date: 20151120
  Transmission Date: 20160304
  Serious: No
  Sender: FDA-Public Use
  Company Number: US-ELI_LILLY_AND_COMPANY-US201209005867

PATIENT
  Age: 70 Year
  Sex: Female

DRUGS (3)
  1. FORTEO [Suspect]
     Active Substance: TERIPARATIDE
     Dosage: 20 UG, QD
     Route: 065
  2. FORTEO [Suspect]
     Active Substance: TERIPARATIDE
     Indication: OSTEOPOROSIS
     Dosage: 20 UG, QD
     Route: 065
     Dates: start: 2012
  3. ZOCOR [Concomitant]
     Active Substance: SIMVASTATIN
     Dosage: UNK, UNKNOWN
     Dates: start: 201209

REACTIONS (17)
  - Myalgia [Not Recovered/Not Resolved]
  - Tremor [Unknown]
  - Dysphonia [Unknown]
  - Peripheral swelling [Unknown]
  - Memory impairment [Not Recovered/Not Resolved]
  - Hypoaesthesia [Unknown]
  - Haemorrhage subcutaneous [Unknown]
  - Paraesthesia [Not Recovered/Not Resolved]
  - Pain in extremity [Not Recovered/Not Resolved]
  - Limb discomfort [Not Recovered/Not Resolved]
  - Swelling [Unknown]
  - Injection site rash [Unknown]
  - Gait disturbance [Unknown]
  - Sleep disorder due to a general medical condition [Unknown]
  - Erythema [Unknown]
  - Hypoaesthesia [Not Recovered/Not Resolved]
  - Bone pain [Not Recovered/Not Resolved]

NARRATIVE: CASE EVENT DATE: 201207
